FAERS Safety Report 15467146 (Version 1)
Quarter: 2018Q4

REPORT INFORMATION
  Report Type: Spontaneous
  Country: US (occurrence: US)
  Receive Date: 20181001
  Receipt Date: 20181001
  Transmission Date: 20190204
  Serious: No
  Sender: FDA-Public Use
  Company Number: None

PATIENT
  Age: 61 Year
  Sex: Male
  Weight: 101.8 kg

DRUGS (2)
  1. LEUPROLIDE ACETATE. [Suspect]
     Active Substance: LEUPROLIDE ACETATE
     Dates: end: 20180625
  2. CASODEX [Suspect]
     Active Substance: BICALUTAMIDE
     Dates: end: 20171226

REACTIONS (4)
  - Testicular atrophy [None]
  - Refusal of examination [None]
  - Erectile dysfunction [None]
  - Drug ineffective [None]

NARRATIVE: CASE EVENT DATE: 20180917
